FAERS Safety Report 26113257 (Version 1)
Quarter: 2025Q4

REPORT INFORMATION
  Report Type: Spontaneous
  Country: US (occurrence: US)
  Receive Date: 20251202
  Receipt Date: 20251202
  Transmission Date: 20260119
  Serious: Yes (Other)
  Sender: MEITHEAL PHARMACEUTICALS
  Company Number: US-MEITHEAL-2025MPSPO00447

PATIENT
  Age: 16 Year
  Sex: Male
  Weight: 44 kg

DRUGS (7)
  1. BUSULFAN [Suspect]
     Active Substance: BUSULFAN
     Indication: Bone marrow conditioning regimen
     Dosage: 36.05MG FOR 5 DOSES, 44.7MG FOR 8 DOSES, 39MG FOR 3 DOSES
     Route: 042
     Dates: start: 20250917, end: 20250920
  2. BUSULFAN [Suspect]
     Active Substance: BUSULFAN
     Dosage: 8 DOSES, CAUC TARGET 62.4
     Route: 042
     Dates: start: 20250917, end: 20250920
  3. BUSULFAN [Suspect]
     Active Substance: BUSULFAN
     Dosage: CAUC TARGET 65.1
     Route: 042
     Dates: start: 20250917, end: 20250920
  4. ZYNTEGLO [Suspect]
     Active Substance: BETIBEGLOGENE AUTOTEMCEL
     Indication: Thalassaemia beta
     Dosage: 8.4 X 10^6 CD34/KG
     Route: 042
     Dates: start: 20250922, end: 20250922
  5. DEFERASIROX [Concomitant]
     Active Substance: DEFERASIROX
     Indication: Product used for unknown indication
     Route: 065
     Dates: end: 20250905
  6. OMNITROPE [Concomitant]
     Active Substance: SOMATROPIN
     Indication: Product used for unknown indication
     Route: 065
     Dates: start: 202405, end: 20250805
  7. FOLIC ACID [Concomitant]
     Active Substance: FOLIC ACID
     Indication: Product used for unknown indication
     Route: 065

REACTIONS (7)
  - Ascites [Recovered/Resolved]
  - Intra-abdominal haemorrhage [Recovered/Resolved]
  - Haemolysis [Unknown]
  - Venoocclusive disease [Recovering/Resolving]
  - Red blood cell count decreased [Unknown]
  - Platelet count decreased [Recovered/Resolved]
  - Pyrexia [Recovered/Resolved]

NARRATIVE: CASE EVENT DATE: 20251017
